FAERS Safety Report 26207976 (Version 1)
Quarter: 2025Q4

REPORT INFORMATION
  Report Type: Spontaneous
  Country: US (occurrence: None)
  Receive Date: 20251226
  Receipt Date: 20251226
  Transmission Date: 20260118
  Serious: Yes (Other)
  Sender: FDA-CTU
  Company Number: None

PATIENT
  Age: 57 Year
  Sex: Female
  Weight: 69.75 kg

DRUGS (1)
  1. BUTRANS [Suspect]
     Active Substance: BUPRENORPHINE
     Indication: Pain

REACTIONS (6)
  - Dysstasia [None]
  - Asthenia [None]
  - Tremor [None]
  - Cold sweat [None]
  - Grip strength decreased [None]
  - Hypophagia [None]

NARRATIVE: CASE EVENT DATE: 20251225
